FAERS Safety Report 6867296-8 (Version None)
Quarter: 2010Q3

REPORT INFORMATION
  Report Type: 
  Country: None (occurrence: None)
  Receive Date: 20100722
  Receipt Date: 20100713
  Transmission Date: 20110219
  Serious: Yes (Other)
  Sender: FDA-Public Use
  Company Number: US-PFIZER INC-2010002871

PATIENT
  Sex: Male
  Weight: 76.6 kg

DRUGS (3)
  1. SUTENT [Suspect]
     Indication: RENAL CANCER
     Dosage: 50 MG, 1X/DAY
     Dates: start: 20090601
  2. SUTENT [Suspect]
     Indication: RENAL CANCER STAGE IV
     Dosage: 37.5 MG, 1X/DAY
     Dates: start: 20100101
  3. SUTENT [Suspect]
     Dosage: 25 MG, 1X/DAY
     Dates: start: 20090601

REACTIONS (4)
  - HYPOTHYROIDISM [None]
  - PALMAR-PLANTAR ERYTHRODYSAESTHESIA SYNDROME [None]
  - THYROID FUNCTION TEST ABNORMAL [None]
  - TONGUE BLISTERING [None]
